FAERS Safety Report 9115726 (Version 1)
Quarter: 2013Q1

REPORT INFORMATION
  Report Type: Spontaneous
  Country: US (occurrence: None)
  Receive Date: 20130221
  Receipt Date: 20130221
  Transmission Date: 20140127
  Serious: Yes (Other)
  Sender: FDA-Public Use
  Company Number: None

PATIENT
  Age: 64 Year
  Sex: Male
  Weight: 83.92 kg

DRUGS (1)
  1. TRIAMCINOLONE [Suspect]
     Indication: NERVE COMPRESSION
     Route: 042
     Dates: start: 20130109

REACTIONS (4)
  - Abdominal pain upper [None]
  - Injection site pain [None]
  - Diarrhoea [None]
  - Eye irritation [None]
